FAERS Safety Report 5847846-0 (Version None)
Quarter: 2008Q3

REPORT INFORMATION
  Report Type: 
  Country: None (occurrence: None)
  Receive Date: 20080814
  Receipt Date: 20080814
  Transmission Date: 20090109
  Serious: Yes (Life-Threatening)
  Sender: FDA-Public Use
  Company Number: None

PATIENT
  Age: 17 Year
  Sex: Male
  Weight: 77.1115 kg

DRUGS (1)
  1. ORAP [Suspect]
     Indication: TOURETTE'S DISORDER
     Dosage: 1 TAB DAILY PO
     Route: 048
     Dates: start: 19991004, end: 20050610

REACTIONS (6)
  - CONTUSION [None]
  - FALL [None]
  - HEAD INJURY [None]
  - NEUROLEPTIC MALIGNANT SYNDROME [None]
  - PAIN [None]
  - SYNCOPE [None]
